FAERS Safety Report 25092215 (Version 3)
Quarter: 2025Q3

REPORT INFORMATION
  Report Type: Report from Study
  Country: US (occurrence: US)
  Receive Date: 20250319
  Receipt Date: 20250901
  Transmission Date: 20251020
  Serious: Yes (Other)
  Sender: ABBVIE
  Company Number: US-ABBVIE-6154721

PATIENT
  Age: 53 Year
  Sex: Male

DRUGS (1)
  1. SKYRIZI [Suspect]
     Active Substance: RISANKIZUMAB-RZAA
     Indication: Psoriasis
     Route: 058
     Dates: start: 20241024

REACTIONS (4)
  - Prosthesis implantation [Unknown]
  - Medical device site pruritus [Not Recovered/Not Resolved]
  - Medical device site erythema [Not Recovered/Not Resolved]
  - Psoriasis [Not Recovered/Not Resolved]
